FAERS Safety Report 15897962 (Version 1)
Quarter: 2019Q1

REPORT INFORMATION
  Report Type: Report from Study
  Country: JP (occurrence: JP)
  Receive Date: 20190201
  Receipt Date: 20190201
  Transmission Date: 20190417
  Serious: Yes (Hospitalization)
  Sender: FDA-Public Use
  Company Number: JP-BIOGEN-2017BI00489842

PATIENT
  Age: 2 Year
  Sex: Female
  Weight: 6.21 kg

DRUGS (13)
  1. SPINRAZA [Suspect]
     Active Substance: NUSINERSEN
     Route: 037
     Dates: start: 20171130, end: 20171130
  2. SPINRAZA [Suspect]
     Active Substance: NUSINERSEN
     Route: 037
     Dates: start: 20171214, end: 20171214
  3. SODIUM VALPROATE [Concomitant]
     Active Substance: VALPROATE SODIUM
     Indication: SPINAL MUSCULAR ATROPHY
     Route: 065
  4. MONILAC [Concomitant]
     Active Substance: LACTULOSE
     Indication: SPINAL MUSCULAR ATROPHY
     Route: 048
  5. PROPETO [Concomitant]
     Indication: ASTEATOSIS
     Dosage: DRY PARTS
     Route: 062
  6. SPINRAZA [Suspect]
     Active Substance: NUSINERSEN
     Indication: SPINAL MUSCULAR ATROPHY
     Route: 037
     Dates: start: 20171115, end: 20171115
  7. SPINRAZA [Suspect]
     Active Substance: NUSINERSEN
     Route: 037
     Dates: start: 20180117, end: 20180117
  8. FENTANYL. [Concomitant]
     Active Substance: FENTANYL
     Indication: ANAESTHESIA PROCEDURE
     Route: 050
  9. PENLES [Concomitant]
     Active Substance: LIDOCAINE
     Indication: ANAESTHESIA PROCEDURE
     Route: 062
  10. XYLOCAINE [Concomitant]
     Active Substance: LIDOCAINE HYDROCHLORIDE
     Indication: ANAESTHESIA PROCEDURE
     Route: 058
  11. SELENICA-R [Concomitant]
     Active Substance: VALPROATE SODIUM
     Indication: EPILEPSY
     Route: 048
  12. TELEMINSOFT [Concomitant]
     Active Substance: BISACODYL
     Indication: SPINAL MUSCULAR ATROPHY
     Dosage: DAILY DOSE: AT CONSTIPATION 2MG
     Route: 054
  13. HYALEIN [Concomitant]
     Active Substance: HYALURONATE SODIUM
     Indication: SPINAL MUSCULAR ATROPHY
     Dosage: INSTILLED INFO EYES 46 TIMES PER DAY
     Route: 047

REACTIONS (4)
  - Pyrexia [Recovered/Resolved]
  - Pneumonia [Recovered/Resolved]
  - Pyrexia [Recovered/Resolved]
  - Pyrexia [Unknown]

NARRATIVE: CASE EVENT DATE: 20171115
